FAERS Safety Report 8610244-0 (Version None)
Quarter: 2012Q3

REPORT INFORMATION
  Report Type: 
  Country: None (occurrence: None)
  Receive Date: 20120810
  Receipt Date: 20120810
  Transmission Date: 20120928
  Serious: Yes (Life-Threatening, Hospitalization)
  Sender: FDA-Public Use
  Company Number: None

PATIENT
  Age: 59 Year
  Sex: Male
  Weight: 80.1 kg

DRUGS (2)
  1. ASPIRIN AND DIPYRIDAMOLE [Suspect]
     Dosage: 25/200 MG BID PO
     Route: 048
  2. ENALAPRIL MALEATE [Suspect]
     Indication: HYPERTENSION
     Dosage: 20 MG EVERY DAY PO
     Route: 048
     Dates: start: 20100218, end: 20120303

REACTIONS (1)
  - ANGIOEDEMA [None]
